FAERS Safety Report 15672705 (Version 1)
Quarter: 2018Q4

REPORT INFORMATION
  Report Type: Report from Study
  Country: US (occurrence: US)
  Receive Date: 20181129
  Receipt Date: 20181129
  Transmission Date: 20190205
  Serious: No
  Sender: FDA-Public Use
  Company Number: US-TESARO-US-2018TSO03740

PATIENT
  Age: 72 Year
  Sex: Female

DRUGS (2)
  1. ZEJULA [Suspect]
     Active Substance: NIRAPARIB
     Indication: OVARIAN CANCER
     Dosage: 200 MG, QD
     Route: 048
     Dates: start: 20180711, end: 20181016
  2. ZEJULA [Suspect]
     Active Substance: NIRAPARIB
     Dosage: 100MG, PM WITH FOOD
     Dates: start: 20181017

REACTIONS (6)
  - Communication disorder [Unknown]
  - Fatigue [Not Recovered/Not Resolved]
  - Dysgeusia [Recovered/Resolved]
  - Decreased appetite [Recovering/Resolving]
  - Underdose [Unknown]
  - Constipation [Recovered/Resolved]

NARRATIVE: CASE EVENT DATE: 20180711
